FAERS Safety Report 4848381-9 (Version None)
Quarter: 2005Q4

REPORT INFORMATION
  Report Type: 
  Country: None (occurrence: None)
  Receive Date: 20051208
  Receipt Date: 20051129
  Transmission Date: 20060501
  Serious: Yes (Hospitalization)
  Sender: FDA-Public Use
  Company Number: US-MERCK-0512USA00188

PATIENT
  Age: 51 Year
  Sex: Female
  Weight: 81 kg

DRUGS (8)
  1. VIOXX [Suspect]
     Indication: ARTHRITIS
     Route: 048
     Dates: start: 20030411, end: 20030725
  2. PREMARIN [Concomitant]
     Route: 065
  3. LOTENSIN [Concomitant]
     Route: 065
  4. NEURONTIN [Concomitant]
     Route: 065
  5. PROTONIX [Concomitant]
     Route: 065
  6. TOPROL-XL [Concomitant]
     Route: 065
  7. ELAVIL [Concomitant]
     Route: 065
  8. METOCLOPRAMIDE [Concomitant]
     Route: 065

REACTIONS (20)
  - ANAEMIA [None]
  - ANGINA PECTORIS [None]
  - ANGINA UNSTABLE [None]
  - ARTERIOSCLEROSIS CORONARY ARTERY [None]
  - BRONCHITIS ACUTE [None]
  - CHEST PAIN [None]
  - DEPRESSION [None]
  - DYSLIPIDAEMIA [None]
  - DYSPNOEA [None]
  - ELECTROCARDIOGRAM ABNORMAL [None]
  - GASTROOESOPHAGEAL REFLUX DISEASE [None]
  - HYPERLIPIDAEMIA [None]
  - LOWER GASTROINTESTINAL HAEMORRHAGE [None]
  - MUSCULOSKELETAL CHEST PAIN [None]
  - MYOCARDIAL INFARCTION [None]
  - NEUROPATHY PERIPHERAL [None]
  - ORTHOPNOEA [None]
  - OTITIS EXTERNA [None]
  - PLEURAL EFFUSION [None]
  - RENAL FAILURE CHRONIC [None]
